FAERS Safety Report 11994998 (Version 1)
Quarter: 2016Q1

REPORT INFORMATION
  Report Type: Report from Study
  Country: DE (occurrence: DE)
  Receive Date: 20160203
  Receipt Date: 20160203
  Transmission Date: 20160526
  Serious: Yes (Hospitalization)
  Sender: FDA-Public Use
  Company Number: DE-JNJFOC-20140202588

PATIENT
  Age: 70 Year
  Sex: Female

DRUGS (3)
  1. GOLIMUMAB [Suspect]
     Active Substance: GOLIMUMAB
     Indication: RHEUMATOID ARTHRITIS
     Route: 058
     Dates: start: 201012, end: 201101
  2. ETANERCEPT [Suspect]
     Active Substance: ETANERCEPT
     Indication: RHEUMATOID ARTHRITIS
     Route: 065
     Dates: start: 201009, end: 201012
  3. RITUXIMAB [Suspect]
     Active Substance: RITUXIMAB
     Indication: RHEUMATOID ARTHRITIS
     Dosage: 1000 (UNITS UNSPECIFIED)
     Route: 065
     Dates: start: 201206

REACTIONS (11)
  - Pulmonary hypertension [Recovered/Resolved]
  - Cardiac pacemaker removal [Recovered/Resolved]
  - Bursitis [Recovered/Resolved]
  - Mitral valve incompetence [Recovered/Resolved]
  - Ovarian mass [Recovered/Resolved]
  - Cholecystitis [Recovered/Resolved]
  - Cardiac failure [Recovered/Resolved]
  - Pleural effusion [Recovered/Resolved]
  - Cardiac resynchronisation therapy [Recovered/Resolved]
  - Device alarm issue [Recovered/Resolved]
  - Tricuspid valve incompetence [Recovered/Resolved]

NARRATIVE: CASE EVENT DATE: 20130513
